FAERS Safety Report 8771462 (Version 1)
Quarter: 2012Q4

REPORT INFORMATION
  Report Type: 
  Country: US (occurrence: US)
  Receive Date: 20120905
  Receipt Date: 20120905
  Transmission Date: 20130627
  Serious: Yes (Other)
  Sender: FDA-Public Use
  Company Number: PHHY2012US075546

PATIENT
  Age: 82 Year
  Sex: Male

DRUGS (1)
  1. ASCRIPTIN - UNKNOWN FORMULA [Suspect]
     Indication: MYOCARDIAL INFARCTION
     Dosage: 1 DF, daily dose
     Route: 048

REACTIONS (4)
  - Myocardial infarction [Recovered/Resolved]
  - Hypertension [Recovered/Resolved]
  - Blood cholesterol increased [Recovered/Resolved]
  - Incorrect drug administration duration [Unknown]
